FAERS Safety Report 17023612 (Version 1)
Quarter: 2019Q4

REPORT INFORMATION
  Report Type: Spontaneous
  Country: DE (occurrence: DE)
  Receive Date: 20191113
  Receipt Date: 20191113
  Transmission Date: 20200122
  Serious: Yes (Hospitalization)
  Sender: FDA-Public Use
  Company Number: DE-BIOGEN-2019BI00804513

PATIENT
  Age: 38 Year
  Sex: Female

DRUGS (1)
  1. TECFIDERA [Suspect]
     Active Substance: DIMETHYL FUMARATE
     Indication: MULTIPLE SCLEROSIS
     Dosage: MAINTENANCE THERAPY
     Route: 048
     Dates: start: 201610, end: 20191027

REACTIONS (3)
  - Coagulopathy [Not Recovered/Not Resolved]
  - Contusion [Not Recovered/Not Resolved]
  - Incision site haemorrhage [Not Recovered/Not Resolved]

NARRATIVE: CASE EVENT DATE: 20191028
